FAERS Safety Report 7532018-4 (Version None)
Quarter: 2011Q2

REPORT INFORMATION
  Report Type: 
  Country: None (occurrence: None)
  Receive Date: 20110608
  Receipt Date: 20110603
  Transmission Date: 20111010
  Serious: Yes (Other)
  Sender: FDA-Public Use
  Company Number: JP-B.I. PHARMACEUTICALS,INC./RIDGEFIELD-2011-BP-14594NB

PATIENT
  Age: 70 Year
  Sex: Male

DRUGS (2)
  1. LANSOPRAZOLE [Concomitant]
     Indication: DYSPEPSIA
     Dosage: 15 MG
     Route: 048
     Dates: start: 20110523
  2. PRADAXA [Suspect]
     Indication: PROPHYLAXIS
     Dosage: 220 MG
     Route: 048
     Dates: start: 20110523

REACTIONS (2)
  - EMBOLISM [None]
  - TRANSIENT ISCHAEMIC ATTACK [None]
